FAERS Safety Report 16264797 (Version 3)
Quarter: 2021Q4

REPORT INFORMATION
  Report Type: Spontaneous
  Country: FR (occurrence: FR)
  Receive Date: 20190502
  Receipt Date: 20211004
  Transmission Date: 20220303
  Serious: Yes (Hospitalization, Other)
  Sender: FDA-Public Use
  Company Number: FR-ETHYPHARM-201801175

PATIENT
  Sex: Female

DRUGS (7)
  1. TRAMADOL [Suspect]
     Active Substance: TRAMADOL
     Indication: Product used for unknown indication
     Dosage: 1500 MG, QD
     Route: 065
  2. CODEINE [Suspect]
     Active Substance: CODEINE
     Indication: Product used for unknown indication
     Dosage: UNK
     Route: 065
  3. SKENAN [Suspect]
     Active Substance: MORPHINE SULFATE
     Indication: Substance use
     Dosage: 600 MILLIGRAM, QD
     Route: 042
  4. ACETAMINOPHEN\CODEINE PHOSPHATE [Suspect]
     Active Substance: ACETAMINOPHEN\CODEINE PHOSPHATE
     Indication: Product used for unknown indication
     Dosage: 10 TABLETS IN THE MORNING, 10 TABLETS AT NOON, 10 TABLETS AND HALF IN THE EVENING
  5. VALIUM [Concomitant]
     Active Substance: DIAZEPAM
     Indication: Product used for unknown indication
     Dosage: UNK
     Route: 065
  6. ATARAX [Concomitant]
     Active Substance: HYDROXYZINE HYDROCHLORIDE
     Indication: Product used for unknown indication
     Dosage: UNK
     Route: 065
  7. DIHYDROCODEINE BITARTRATE [Concomitant]
     Active Substance: DIHYDROCODEINE BITARTRATE
     Indication: Drug withdrawal maintenance therapy
     Dosage: 12 DOSAGE FORM

REACTIONS (14)
  - Loss of consciousness [Recovered/Resolved]
  - Rhabdomyolysis [Unknown]
  - Pallor [Unknown]
  - Overdose [Unknown]
  - Drug abuse [Unknown]
  - Drug dependence [Unknown]
  - Intentional product use issue [Unknown]
  - Drug diversion [Unknown]
  - Depressed mood [Unknown]
  - Oedema peripheral [Unknown]
  - Insomnia [Unknown]
  - Substance use [Unknown]
  - Feeling cold [Unknown]
  - Vomiting [Unknown]

NARRATIVE: CASE EVENT DATE: 20210501
